FAERS Safety Report 23211487 (Version 1)
Quarter: 2023Q4

REPORT INFORMATION
  Report Type: Spontaneous
  Country: DE (occurrence: DE)
  Receive Date: 20231121
  Receipt Date: 20231121
  Transmission Date: 20240110
  Serious: No
  Sender: FDA-Public Use
  Company Number: DE-WW-2023-0273-LUN

PATIENT
  Age: 59 Year
  Sex: Female

DRUGS (1)
  1. ESZOPICLONE [Suspect]
     Active Substance: ESZOPICLONE
     Dosage: 3 MG
     Route: 065
     Dates: start: 202303

REACTIONS (1)
  - Pre-existing condition improved [Unknown]
